FAERS Safety Report 20941989 (Version 1)
Quarter: 2022Q2

REPORT INFORMATION
  Report Type: Spontaneous
  Country: CN (occurrence: CN)
  Receive Date: 20220610
  Receipt Date: 20220610
  Transmission Date: 20220721
  Serious: Yes (Hospitalization)
  Sender: FDA-Public Use
  Company Number: CN-STRIDES ARCOLAB LIMITED-2022SP006807

PATIENT
  Sex: Female

DRUGS (12)
  1. METHOTREXATE [Suspect]
     Active Substance: METHOTREXATE
     Indication: Lupus nephritis
     Dosage: 10 MILLIGRAM, ONCE A WEEK
     Route: 065
     Dates: start: 2018
  2. MYCOPHENOLATE MOFETIL [Suspect]
     Active Substance: MYCOPHENOLATE MOFETIL
     Indication: Lupus nephritis
     Dosage: 0.25 MILLIGRAM, BID
     Route: 065
     Dates: start: 202005
  3. HYDROXYCHLOROQUINE [Suspect]
     Active Substance: HYDROXYCHLOROQUINE
     Indication: Lupus nephritis
     Dosage: UNK (STOP DATE: JAN 2018)
     Route: 065
  4. HYDROXYCHLOROQUINE [Suspect]
     Active Substance: HYDROXYCHLOROQUINE
     Dosage: 0.1 GRAM, BID
     Route: 065
     Dates: start: 2018
  5. HYDROXYCHLOROQUINE [Suspect]
     Active Substance: HYDROXYCHLOROQUINE
     Dosage: 0.2 GRAM, BID
     Route: 065
     Dates: start: 202005
  6. RABIES VACCINE [Suspect]
     Active Substance: RABIES VACCINE
     Indication: Animal scratch
     Dosage: UNK, FIRST DOSE
     Route: 065
     Dates: start: 20210328
  7. RABIES VACCINE [Suspect]
     Active Substance: RABIES VACCINE
     Dosage: UNK, SECOND DOSE
     Route: 065
     Dates: start: 20210404
  8. RABIES VACCINE [Suspect]
     Active Substance: RABIES VACCINE
     Dosage: UNK, THIRD DOSE
     Route: 065
     Dates: start: 20210406
  9. RABIES VACCINE [Suspect]
     Active Substance: RABIES VACCINE
     Dosage: UNK, FOURTH DOSE
     Route: 065
     Dates: start: 20210412
  10. CYCLOPHOSPHAMIDE [Concomitant]
     Active Substance: CYCLOPHOSPHAMIDE
     Indication: Lupus nephritis
     Dosage: UNK (STOP DATE: JAN 2018)
     Route: 065
  11. METHYLPREDNISOLONE [Concomitant]
     Active Substance: METHYLPREDNISOLONE
     Indication: Lupus nephritis
     Dosage: UNK (STOP DATE: JAN 2018)
     Route: 065
  12. METHYLPREDNISOLONE [Concomitant]
     Active Substance: METHYLPREDNISOLONE
     Dosage: UNK
     Route: 065

REACTIONS (2)
  - Thrombotic thrombocytopenic purpura [Recovered/Resolved]
  - Off label use [Unknown]

NARRATIVE: CASE EVENT DATE: 20210101
